FAERS Safety Report 5114052-7 (Version None)
Quarter: 2006Q3

REPORT INFORMATION
  Report Type: 
  Country: None (occurrence: None)
  Receive Date: 20060925
  Receipt Date: 20060914
  Transmission Date: 20061208
  Serious: Yes (Other)
  Sender: FDA-Public Use
  Company Number: US-MERCK-0609USA03028

PATIENT
  Sex: Female

DRUGS (4)
  1. VYTORIN [Suspect]
     Route: 048
  2. PLAVIX [Concomitant]
     Route: 065
  3. LASIX [Concomitant]
     Route: 065
  4. SPIRONOLACTONE [Concomitant]
     Route: 065

REACTIONS (3)
  - CARDIOVASCULAR DISORDER [None]
  - CORONARY ARTERY DISEASE [None]
  - MICROANGIOPATHY [None]
